FAERS Safety Report 9001078 (Version 2)
Quarter: 2013Q1

REPORT INFORMATION
  Report Type: Report from Study
  Country: SE (occurrence: SE)
  Receive Date: 20130107
  Receipt Date: 20130110
  Transmission Date: 20140127
  Serious: Yes (Death, Other)
  Sender: FDA-Public Use
  Company Number: SE-TEVA-359754ISR

PATIENT
  Age: 69 Year
  Sex: Female

DRUGS (18)
  1. AMLODIPINE [Suspect]
  2. SAXAGLIPTIN [Suspect]
     Indication: TYPE 2 DIABETES MELLITUS
     Dates: start: 20101013, end: 20111020
  3. NOVOMIX [Suspect]
     Indication: TYPE 2 DIABETES MELLITUS
  4. DIURETICS [Concomitant]
  5. VERAPAMIL [Concomitant]
  6. DILTIAZEM HCL [Concomitant]
  7. ACE INHIBITOR NOS [Concomitant]
  8. STATIN [Concomitant]
  9. CALCIUM ANTAGONIST [Concomitant]
  10. SINEMET [Concomitant]
     Dates: start: 20110912
  11. MADOPAR [Concomitant]
     Dates: start: 20101217
  12. OXYNORM [Concomitant]
     Dates: start: 20120316
  13. OXYCONTIN [Concomitant]
     Dates: start: 20120316
  14. MOVICOL [Concomitant]
     Dates: start: 20120316
  15. ONDANSETRON [Concomitant]
     Dates: start: 20120403
  16. PRIMPERAN [Concomitant]
     Dates: start: 20120403
  17. LOPERAMIDE [Concomitant]
     Dates: start: 20120403
  18. BETAPRED [Concomitant]
     Dates: start: 20120403

REACTIONS (2)
  - Colon cancer metastatic [Fatal]
  - Hypotension [Recovered/Resolved]
